FAERS Safety Report 6406239-8 (Version None)
Quarter: 2009Q4

REPORT INFORMATION
  Report Type: 
  Country: None (occurrence: None)
  Receive Date: 20091019
  Receipt Date: 20091005
  Transmission Date: 20100525
  Serious: Yes (Other)
  Sender: FDA-Public Use
  Company Number: PHHY2009PE42814

PATIENT
  Age: 21 Year
  Sex: Female

DRUGS (1)
  1. TEGRETOL-XR [Suspect]
     Dosage: 4000 MG, ONCE/SINGLE
     Dates: start: 20091002

REACTIONS (4)
  - CONFUSIONAL STATE [None]
  - INTENTIONAL DRUG MISUSE [None]
  - NAUSEA [None]
  - VOMITING [None]
